FAERS Safety Report 23581421 (Version 2)
Quarter: 2024Q1

REPORT INFORMATION
  Report Type: Spontaneous
  Country: US (occurrence: US)
  Receive Date: 20240229
  Receipt Date: 20240301
  Transmission Date: 20240410
  Serious: Yes (Other)
  Sender: FDA-Public Use
  Company Number: US-PFIZER INC-202400052155

PATIENT
  Age: 71 Year
  Sex: Male

DRUGS (3)
  1. TIKOSYN [Suspect]
     Active Substance: DOFETILIDE
     Indication: Arrhythmia
     Dosage: UNK
     Dates: start: 202312
  2. TIKOSYN [Suspect]
     Active Substance: DOFETILIDE
     Indication: Atrial fibrillation
  3. TIKOSYN [Suspect]
     Active Substance: DOFETILIDE
     Indication: Atrial flutter

REACTIONS (1)
  - Arrhythmia [Unknown]
